FAERS Safety Report 12500075 (Version 1)
Quarter: 2016Q2

REPORT INFORMATION
  Report Type: Spontaneous
  Country: US (occurrence: None)
  Receive Date: 20160624
  Receipt Date: 20160624
  Transmission Date: 20160815
  Serious: No
  Sender: FDA-Public Use
  Company Number: None

PATIENT
  Age: 58 Year
  Sex: Male
  Weight: 96 kg

DRUGS (1)
  1. INTRON A [Suspect]
     Active Substance: INTERFERON ALFA-2B
     Dosage: 45 MU
     Dates: end: 20120525

REACTIONS (3)
  - White blood cell count decreased [None]
  - Pyrexia [None]
  - Immune system disorder [None]

NARRATIVE: CASE EVENT DATE: 20120507
